FAERS Safety Report 7478109-8 (Version None)
Quarter: 2011Q2

REPORT INFORMATION
  Report Type: 
  Country: None (occurrence: None)
  Receive Date: 20110513
  Receipt Date: 20110509
  Transmission Date: 20111010
  Serious: Yes (Other)
  Sender: FDA-Public Use
  Company Number: DE-US-EMD SERONO, INC.-7055161

PATIENT
  Sex: Female
  Weight: 92 kg

DRUGS (1)
  1. REBIF [Suspect]
     Indication: MULTIPLE SCLEROSIS
     Route: 058
     Dates: start: 20050201

REACTIONS (3)
  - SCOTOMA [None]
  - OCULAR VASCULAR DISORDER [None]
  - VISUAL ACUITY REDUCED [None]
